FAERS Safety Report 20411293 (Version 1)
Quarter: 2022Q1

REPORT INFORMATION
  Report Type: Spontaneous
  Country: US (occurrence: None)
  Receive Date: 20220201
  Receipt Date: 20220201
  Transmission Date: 20220424
  Serious: Yes (unspecified)
  Sender: FDA-Public Use
  Company Number: None

PATIENT
  Age: 27 Year
  Sex: Female

DRUGS (5)
  1. CHLORPROMAZINE HYDROCHLORIDE [Suspect]
     Active Substance: CHLORPROMAZINE HYDROCHLORIDE
     Indication: Psychotic disorder
     Dosage: FREQUENCY : TWICE A DAY;?
     Route: 048
     Dates: start: 20220113, end: 20220117
  2. haloperidol decanoate 100mg IM every 4 weeks [Concomitant]
     Dates: start: 20220112
  3. gabapentin 300mg TID [Concomitant]
  4. olanzapine 20mg HS [Concomitant]
  5. fluoxetine 20mg HS [Concomitant]

REACTIONS (4)
  - Trismus [None]
  - Eye movement disorder [None]
  - Dysphagia [None]
  - Ocular discomfort [None]

NARRATIVE: CASE EVENT DATE: 20220117
